FAERS Safety Report 25507148 (Version 1)
Quarter: 2025Q3

REPORT INFORMATION
  Report Type: Report from Study
  Country: US (occurrence: US)
  Receive Date: 20250702
  Receipt Date: 20250702
  Transmission Date: 20251020
  Serious: Yes (Hospitalization)
  Sender: ABBVIE
  Company Number: US-ABBVIE-6351903

PATIENT
  Age: 62 Year
  Sex: Female

DRUGS (1)
  1. HUMIRA [Suspect]
     Active Substance: ADALIMUMAB
     Indication: Rheumatoid arthritis
     Route: 058
     Dates: start: 20250114, end: 20250522

REACTIONS (5)
  - Autoimmune pancreatitis [Unknown]
  - Abdominal pain [Recovering/Resolving]
  - Dyspnoea [Unknown]
  - Adrenalitis [Unknown]
  - Vasculitis [Unknown]

NARRATIVE: CASE EVENT DATE: 20250101
